FAERS Safety Report 7551600-1 (Version None)
Quarter: 2011Q2

REPORT INFORMATION
  Report Type: 
  Country: None (occurrence: None)
  Receive Date: 20110616
  Receipt Date: 20110127
  Transmission Date: 20111010
  Serious: Yes (Hospitalization, Other)
  Sender: FDA-Public Use
  Company Number: US-BAYER-201037397NA

PATIENT
  Age: 38 Year
  Sex: Female
  Weight: 62.132 kg

DRUGS (5)
  1. ADVIL LIQUI-GELS [Concomitant]
     Indication: PAIN
     Dosage: UNK UNK, IRR
  2. TYLENOL COLD MEDICATION [Concomitant]
  3. MULTI-VITAMIN [Concomitant]
  4. YASMIN [Suspect]
     Indication: PRODUCT USED FOR UNKNOWN INDICATION
     Dosage: UNK UNK, UNK
     Route: 048
     Dates: start: 20070427, end: 20070801
  5. MINOCIN [Concomitant]

REACTIONS (4)
  - EMOTIONAL DISTRESS [None]
  - PAIN [None]
  - PULMONARY EMBOLISM [None]
  - INJURY [None]
